FAERS Safety Report 8190396-X (Version None)
Quarter: 2012Q1

REPORT INFORMATION
  Report Type: 
  Country: None (occurrence: None)
  Receive Date: 20120305
  Receipt Date: 20120221
  Transmission Date: 20120608
  Serious: Yes (Hospitalization, Other)
  Sender: FDA-Public Use
  Company Number: 20120109

PATIENT
  Sex: Female

DRUGS (1)
  1. DEXAMETHASONE SODIUM PHOSPHATE [Suspect]
     Indication: PRODUCT USED FOR UNKNOWN INDICATION
     Dosage: UNKNOWN INJECTION NOS
     Dates: start: 20090101

REACTIONS (8)
  - SOFT TISSUE INFECTION [None]
  - FAT NECROSIS [None]
  - OEDEMA PERIPHERAL [None]
  - PAIN [None]
  - PURULENCE [None]
  - EXTRAVASATION [None]
  - PEAU D'ORANGE [None]
  - CALCINOSIS [None]
